FAERS Safety Report 17331428 (Version 1)
Quarter: 2020Q1

REPORT INFORMATION
  Report Type: Spontaneous
  Country: US (occurrence: US)
  Receive Date: 20200127
  Receipt Date: 20200127
  Transmission Date: 20200409
  Serious: Yes (Hospitalization)
  Sender: FDA-Public Use
  Company Number: None

PATIENT
  Age: 6 Year
  Sex: Female

DRUGS (6)
  1. BUDESONIDE SUS 1MG/2ML [Concomitant]
     Dates: start: 20191212
  2. VITIAMIN B TABS 100MG [Concomitant]
     Dates: start: 20191107
  3. VALPROIC ACD SOL 250/5ML [Concomitant]
     Dates: start: 20191216
  4. LIDO/PRILOCN CRE 2.5-2.5% [Concomitant]
     Dates: start: 20200121
  5. TOBRAMYCIN. [Suspect]
     Active Substance: TOBRAMYCIN
     Indication: CYSTIC FIBROSIS
     Dosage: ?          OTHER FREQUENCY:N/A;?
     Route: 055
     Dates: start: 20200127
  6. IPRATROPIUM/SOL ALBUTER [Concomitant]
     Dates: start: 20191223

REACTIONS (1)
  - Vomiting [None]

NARRATIVE: CASE EVENT DATE: 20200127
